FAERS Safety Report 7572890-5 (Version None)
Quarter: 2011Q2

REPORT INFORMATION
  Report Type: 
  Country: None (occurrence: None)
  Receive Date: 20110627
  Receipt Date: 20110620
  Transmission Date: 20111010
  Serious: Yes (Death, Other)
  Sender: FDA-Public Use
  Company Number: GB-ELI_LILLY_AND_COMPANY-GB201106005384

PATIENT
  Age: 21 Year
  Sex: Male

DRUGS (2)
  1. ERYTHROMYCIN [Concomitant]
     Indication: ACNE
     Dosage: 250 MG, BID
     Route: 048
     Dates: start: 20110324
  2. CYMBALTA [Suspect]
     Indication: DEPRESSION
     Dosage: 60 MG, UNK
     Route: 048
     Dates: start: 20110402

REACTIONS (1)
  - ARRHYTHMIA [None]
